FAERS Safety Report 10048782 (Version 2)
Quarter: 2014Q2

REPORT INFORMATION
  Report Type: Spontaneous
  Country: US (occurrence: US)
  Receive Date: 20140331
  Receipt Date: 20140404
  Transmission Date: 20141212
  Serious: Yes (Other)
  Sender: FDA-Public Use
  Company Number: US-PFIZER INC-2014087148

PATIENT
  Age: 80 Year
  Sex: Male
  Weight: 86.17 kg

DRUGS (1)
  1. GLYBURIDE [Suspect]
     Indication: DIABETES MELLITUS
     Dosage: UNK

REACTIONS (2)
  - Arthropathy [Unknown]
  - Thyroid disorder [Unknown]
